FAERS Safety Report 11539743 (Version 1)
Quarter: 2015Q3

REPORT INFORMATION
  Report Type: Spontaneous
  Country: US (occurrence: None)
  Receive Date: 20150922
  Receipt Date: 20150922
  Transmission Date: 20151125
  Serious: Yes (Other)
  Sender: FDA-Public Use
  Company Number: None

PATIENT
  Age: 61 Year
  Sex: Female
  Weight: 144 kg

DRUGS (32)
  1. ALENDRONATE 70 MG (GENERIC FOR FOSOMAX 70 MG) [Suspect]
     Active Substance: ALENDRONATE SODIUM
     Indication: BONE DENSITY DECREASED
     Route: 048
     Dates: start: 20150513, end: 20150909
  2. MULTI-VIT WITH MINERALS [Concomitant]
  3. FISH OIL [Concomitant]
     Active Substance: FISH OIL
  4. CLONAZEPAM. [Concomitant]
     Active Substance: CLONAZEPAM
  5. FLUTICASONE PROPRIANATE [Concomitant]
  6. PROBIOTIC CAPS - COLON HEALTH [Concomitant]
  7. VIIBRYD [Concomitant]
     Active Substance: VILAZODONE HYDROCHLORIDE
  8. SOMA [Concomitant]
     Active Substance: CARISOPRODOL
  9. BACTOBAN [Concomitant]
  10. HYDROCORTISONE CREAM [Concomitant]
     Active Substance: HYDROCORTISONE
  11. HALOBETASON PROPRIONATE [Concomitant]
  12. SUBLINGUAL VIT B COMPLEX [Concomitant]
  13. LIDODERM [Concomitant]
     Active Substance: LIDOCAINE
  14. MOVANTIK [Concomitant]
     Active Substance: NALOXEGOL OXALATE
  15. ESTRADIOL PATCH [Concomitant]
  16. VITAMIN D3 [Concomitant]
     Active Substance: CHOLECALCIFEROL
  17. ALENDRONATE 70 MG (GENERIC FOR FOSOMAX 70 MG) [Suspect]
     Active Substance: ALENDRONATE SODIUM
     Indication: PROPHYLAXIS
     Route: 048
     Dates: start: 20150513, end: 20150909
  18. ALTABAX [Concomitant]
     Active Substance: RETAPAMULIN
  19. SENNA-S (GENERIC) [Concomitant]
  20. REQUIP [Concomitant]
     Active Substance: ROPINIROLE HYDROCHLORIDE
  21. MIRALAX [Concomitant]
     Active Substance: POLYETHYLENE GLYCOL 3350
  22. MSER 100MG [Concomitant]
     Active Substance: MORPHINE SULFATE
  23. OXYCODONE [Concomitant]
     Active Substance: OXYCODONE
  24. CHONDROITIN/GLUCOSAMINE [Concomitant]
     Active Substance: CHONDROITIN SULFATE (BOVINE)\GLUCOSAMINE SULFATE
  25. ALENDRONATE 70 MG (GENERIC FOR FOSOMAX 70 MG) [Suspect]
     Active Substance: ALENDRONATE SODIUM
     Indication: FRACTURE
     Route: 048
     Dates: start: 20150513, end: 20150909
  26. TRAZODONE [Concomitant]
     Active Substance: TRAZODONE HYDROCHLORIDE
  27. ROZEREM [Concomitant]
     Active Substance: RAMELTEON
  28. MEDROXYPROGRESTERONE [Concomitant]
  29. VITAMIN C [Concomitant]
     Active Substance: ASCORBIC ACID
  30. MAGNESIUM [Concomitant]
     Active Substance: MAGNESIUM
  31. DOCUSATE CALCIUM. [Concomitant]
     Active Substance: DOCUSATE CALCIUM
  32. FIBER-PLUS [Concomitant]

REACTIONS (2)
  - Vertigo positional [None]
  - Fall [None]

NARRATIVE: CASE EVENT DATE: 20150525
